FAERS Safety Report 5359170-3 (Version None)
Quarter: 2007Q2

REPORT INFORMATION
  Report Type: 
  Country: None (occurrence: None)
  Receive Date: 20070615
  Receipt Date: 20070206
  Transmission Date: 20071010
  Serious: Yes (Death)
  Sender: FDA-Public Use
  Company Number: JP-ROCHE-482958

PATIENT
  Age: 76 Year
  Sex: Male
  Weight: 52 kg

DRUGS (4)
  1. ROCEPHIN [Suspect]
     Indication: INFECTION
     Dosage: DOSE DECREASED.
     Route: 042
     Dates: start: 20061110, end: 20061110
  2. ROCEPHIN [Suspect]
     Route: 042
     Dates: start: 20061111, end: 20061121
  3. ALLOPURINOL [Concomitant]
     Dosage: FROM 25 OCT' 06 TO 31 OCT' 06: 50 MG ONCE DAILY. FROM 07 NOV 2006 - UNKNOWN: 100 MG ONCE DAILY.
     Route: 048
     Dates: start: 20061025, end: 20061031
  4. KALIMATE [Concomitant]
     Dosage: THE DRUG WAS DISCONTINUED BETWEEN 31 OCTOBER 2006 TO 02 NOVEMBER 2006.
     Route: 048
     Dates: start: 20061025

REACTIONS (2)
  - FAT EMBOLISM [None]
  - SEROTONIN SYNDROME [None]
